FAERS Safety Report 18794310 (Version 1)
Quarter: 2021Q1

REPORT INFORMATION
  Report Type: Spontaneous
  Country: US (occurrence: US)
  Receive Date: 20210127
  Receipt Date: 20210127
  Transmission Date: 20210419
  Serious: Yes (Death, Life-Threatening, Hospitalization)
  Sender: FDA-Public Use
  Company Number: None

PATIENT
  Age: 72 Year
  Sex: Male
  Weight: 109 kg

DRUGS (2)
  1. CEFTRIAXONE. [Concomitant]
     Active Substance: CEFTRIAXONE
     Dates: start: 20201227, end: 20210103
  2. BAMLANIVIMAB. [Suspect]
     Active Substance: BAMLANIVIMAB
     Indication: COVID-19
     Dosage: ?          OTHER FREQUENCY:ONCE;?
     Route: 042
     Dates: start: 20201227, end: 20201227

REACTIONS (14)
  - Drug reaction with eosinophilia and systemic symptoms [None]
  - Blood bilirubin increased [None]
  - Hepatorenal syndrome [None]
  - Hypotension [None]
  - Shock [None]
  - Eosinophilia [None]
  - Epididymitis [None]
  - Cellulitis [None]
  - Blood alkaline phosphatase increased [None]
  - Erythema [None]
  - Leukocytosis [None]
  - Encephalopathy [None]
  - Hepatic cirrhosis [None]
  - Hepatic function abnormal [None]

NARRATIVE: CASE EVENT DATE: 20210115
